FAERS Safety Report 10340673 (Version 1)
Quarter: 2014Q3

REPORT INFORMATION
  Report Type: Spontaneous
  Country: PL (occurrence: PL)
  Receive Date: 20140724
  Receipt Date: 20140724
  Transmission Date: 20150326
  Serious: Yes (Other)
  Sender: FDA-Public Use
  Company Number: PL-PFIZER INC-2014202125

PATIENT
  Sex: Female

DRUGS (8)
  1. HEPARIN SODIUM. [Suspect]
     Active Substance: HEPARIN SODIUM
     Route: 064
  2. FLUCONAZOLE. [Suspect]
     Active Substance: FLUCONAZOLE
     Route: 064
  3. IMIPENEN CILASTATINA [Suspect]
     Active Substance: CILASTATIN SODIUM\IMIPENEM
     Route: 064
  4. DEXAMETHASONE. [Suspect]
     Active Substance: DEXAMETHASONE
     Route: 064
  5. LINEZOLID. [Suspect]
     Active Substance: LINEZOLID
     Route: 064
  6. OSELTAMIVIR [Suspect]
     Active Substance: OSELTAMIVIR
     Route: 064
  7. PIPERACILLIN/TAZOBACTAM [Suspect]
     Active Substance: PIPERACILLIN SODIUM\TAZOBACTAM SODIUM
     Route: 064
  8. AZITHROMYCIN [Suspect]
     Active Substance: AZITHROMYCIN ANHYDROUS
     Route: 064

REACTIONS (3)
  - Caesarean section [None]
  - Maternal exposure during pregnancy [Unknown]
  - Premature baby [Unknown]
